FAERS Safety Report 5412308-1 (Version None)
Quarter: 2007Q3

REPORT INFORMATION
  Report Type: 
  Country: None (occurrence: None)
  Receive Date: 20070713
  Receipt Date: 20070519
  Transmission Date: 20080115
  Serious: No
  Sender: FDA-Public Use
  Company Number: 2007SP001895

PATIENT
  Age: 69 Year
  Sex: Male
  Weight: 113.3993 kg

DRUGS (3)
  1. LUNESTA [Suspect]
     Indication: INSOMNIA
     Dosage: 2 MG; ORAL
     Route: 048
     Dates: start: 20070504
  2. TYLENOL W/ CODEINE NO. 4 [Concomitant]
  3. ELAVIL [Concomitant]

REACTIONS (1)
  - INSOMNIA [None]
